FAERS Safety Report 16400817 (Version 1)
Quarter: 2019Q2

REPORT INFORMATION
  Report Type: Spontaneous
  Country: US (occurrence: US)
  Receive Date: 20190606
  Receipt Date: 20190606
  Transmission Date: 20190711
  Serious: No
  Sender: FDA-Public Use
  Company Number: US-GALDERMA-US18033734

PATIENT
  Sex: Female

DRUGS (4)
  1. PROACTIV MOISTURE REPAIR [Concomitant]
     Active Substance: COSMETICS
     Indication: SKIN TIGHTNESS
     Route: 061
     Dates: start: 20180127, end: 20180301
  2. PROACTIV MD ADAPALENE ACNE TREATMENT [Suspect]
     Active Substance: ADAPALENE
     Indication: SKIN TIGHTNESS
     Dosage: 0.1%
     Route: 061
     Dates: start: 20180127, end: 20180301
  3. PROACTIV MD DAILY OIL CONTROL SPF 30 [Suspect]
     Active Substance: AVOBENZONE\OCTISALATE\OCTOCRYLENE
     Indication: SKIN TIGHTNESS
     Route: 061
     Dates: start: 20180127, end: 20180301
  4. PROACTIV MD DEEP CLEANSING FACE WASH [Concomitant]
     Active Substance: COSMETICS
     Indication: SKIN TIGHTNESS
     Route: 061
     Dates: start: 20180127, end: 20180301

REACTIONS (2)
  - Rash papular [Recovering/Resolving]
  - Product use in unapproved indication [Recovered/Resolved]

NARRATIVE: CASE EVENT DATE: 20180127
